FAERS Safety Report 9504522 (Version 2)
Quarter: 2015Q2

REPORT INFORMATION
  Report Type: Spontaneous
  Country: US (occurrence: US)
  Receive Date: 20130906
  Receipt Date: 20150513
  Transmission Date: 20150821
  Serious: Yes (Death, Other)
  Sender: FDA-Public Use
  Company Number: PHHY2013US097422

PATIENT
  Age: 2 Month
  Sex: Male
  Weight: 2.2 kg

DRUGS (5)
  1. ENALAPRIL [Suspect]
     Active Substance: ENALAPRIL
     Indication: PROTEINURIA
     Dosage: 0.01 MG/KG, ON DAY 2
     Route: 042
  2. ENALAPRIL [Suspect]
     Active Substance: ENALAPRIL
     Dosage: 0.005 MG/KG, ON DAY 3
     Route: 042
  3. ENALAPRIL [Suspect]
     Active Substance: ENALAPRIL
     Indication: PROTEINURIA
     Dosage: 0.05 MG/KG, UNK
     Route: 048
  4. FUROSEMIDE. [Suspect]
     Active Substance: FUROSEMIDE
     Indication: HEART DISEASE CONGENITAL
     Dosage: 1 MG/KG, BID
     Route: 065
  5. CHLOROTHIAZIDE. [Suspect]
     Active Substance: CHLOROTHIAZIDE
     Indication: HEART DISEASE CONGENITAL
     Dosage: 10 MG/KG, BID
     Route: 065

REACTIONS (7)
  - Pulmonary hypertension [Fatal]
  - Respiratory failure [Fatal]
  - Hypotension [Recovered/Resolved]
  - Blood creatinine increased [Recovered/Resolved]
  - Blood urea increased [Recovered/Resolved]
  - Oliguria [Unknown]
  - Acute kidney injury [Unknown]
